FAERS Safety Report 12100085 (Version 2)
Quarter: 2016Q2

REPORT INFORMATION
  Report Type: Spontaneous
  Country: CH (occurrence: CH)
  Receive Date: 20160222
  Receipt Date: 20160420
  Transmission Date: 20160815
  Serious: Yes (Other)
  Sender: FDA-Public Use
  Company Number: CH-TEVA-636319ISR

PATIENT
  Age: 36 Year
  Sex: Male

DRUGS (3)
  1. IRFEN-400 LACTAB [Suspect]
     Active Substance: IBUPROFEN
     Indication: LIGAMENT SPRAIN
     Dosage: STRENGTH: 400MG, 400MG 2X/D IN RESERVE IN RESERVE, MAX 2 TABLETS A WEEK
     Route: 048
     Dates: start: 201504, end: 201601
  2. NUROFEN [Suspect]
     Active Substance: IBUPROFEN
     Indication: HEADACHE
     Dosage: UNSPECIFIED STRENGTH; 400MG 2X/D IN RESERVE, MAX 2-4 TABLETS PER WEEK
     Route: 048
     Dates: start: 2006, end: 201601
  3. DAFALGAN [Concomitant]
     Active Substance: ACETAMINOPHEN
     Indication: HEADACHE
     Dosage: 4 GRAM DAILY; UNSPECIFIED STRENGTH; 1G 4X/D IN RESERVE AND MAX OF 1-2G PER WEEK
     Route: 065

REACTIONS (3)
  - Acute kidney injury [Not Recovered/Not Resolved]
  - Pulmonary haemorrhage [Not Recovered/Not Resolved]
  - Thrombotic microangiopathy [Not Recovered/Not Resolved]

NARRATIVE: CASE EVENT DATE: 201511
